FAERS Safety Report 24603791 (Version 1)
Quarter: 2024Q4

REPORT INFORMATION
  Report Type: Spontaneous
  Country: US (occurrence: None)
  Receive Date: 20241110
  Receipt Date: 20241110
  Transmission Date: 20250114
  Serious: Yes (Hospitalization)
  Sender: Public
  Company Number: None

PATIENT
  Age: 47 Year
  Sex: Female
  Weight: 60.75 kg

DRUGS (1)
  1. PAXLOVID [Suspect]
     Active Substance: NIRMATRELVIR\RITONAVIR
     Indication: COVID-19
     Dosage: 8  PACKETS/DPSES TWICE A DAY

REACTIONS (8)
  - Pain [None]
  - Feeling abnormal [None]
  - Oropharyngeal pain [None]
  - Fatigue [None]
  - Delirium [None]
  - Myoclonus [None]
  - Muscle tightness [None]
  - Seizure like phenomena [None]

NARRATIVE: CASE EVENT DATE: 20241107
